FAERS Safety Report 16178355 (Version 2)
Quarter: 2019Q2

REPORT INFORMATION
  Report Type: Spontaneous
  Country: ES (occurrence: ES)
  Receive Date: 20190410
  Receipt Date: 20190429
  Transmission Date: 20190711
  Serious: Yes (Death, Life-Threatening, Other)
  Sender: FDA-Public Use
  Company Number: ES-AUROBINDO-AUR-APL-2019-018879

PATIENT

DRUGS (17)
  1. CETUXIMAB. [Concomitant]
     Active Substance: CETUXIMAB
     Indication: METASTASES TO LIVER
  2. FLUOROURACIL. [Concomitant]
     Active Substance: FLUOROURACIL
     Dosage: UNK, 4 CYCLICAL
     Route: 065
  3. FOLINIC ACID [Concomitant]
     Active Substance: LEUCOVORIN
     Indication: METASTASES TO LIVER
     Dosage: UNK, 3 CYCLICAL
     Route: 065
  4. AVASTIN [Suspect]
     Active Substance: BEVACIZUMAB
     Indication: ADENOCARCINOMA OF COLON
     Dosage: UNK
     Route: 065
  5. CETUXIMAB. [Concomitant]
     Active Substance: CETUXIMAB
     Indication: ADENOCARCINOMA OF COLON
     Dosage: UNK, CYCLICAL
     Route: 065
  6. FOLINIC ACID [Concomitant]
     Active Substance: LEUCOVORIN
     Dosage: UNK, 4 CYCLICAL
     Route: 065
  7. FLUOROURACIL. [Concomitant]
     Active Substance: FLUOROURACIL
     Indication: ADENOCARCINOMA OF COLON
     Dosage: UNK, CYCLICAL
     Route: 016
  8. CAPECITABINE. [Suspect]
     Active Substance: CAPECITABINE
     Indication: ADENOCARCINOMA OF COLON
     Dosage: UNK
     Route: 065
  9. CAPECITABINE. [Suspect]
     Active Substance: CAPECITABINE
     Indication: METASTASES TO LIVER
     Dosage: UNK, 2 CYCLICAL
     Route: 065
  10. OXALIPLATIN. [Interacting]
     Active Substance: OXALIPLATIN
     Indication: METASTASES TO LIVER
     Dosage: UNK, 4 CYCLICAL
     Route: 065
  11. AVASTIN [Suspect]
     Active Substance: BEVACIZUMAB
     Indication: COLON CANCER METASTATIC
  12. FOLINIC ACID [Concomitant]
     Active Substance: LEUCOVORIN
     Indication: ADENOCARCINOMA OF COLON
     Dosage: UNK, CYCLICAL
     Route: 065
  13. AVASTIN [Suspect]
     Active Substance: BEVACIZUMAB
     Indication: METASTASES TO LIVER
     Dosage: UNK, 2 CYCLE
     Route: 065
  14. FLUOROURACIL. [Concomitant]
     Active Substance: FLUOROURACIL
     Indication: METASTASES TO LIVER
     Dosage: UNK, 3 CYCLICAL
     Route: 065
  15. IRINOTECAN [Concomitant]
     Active Substance: IRINOTECAN
     Indication: METASTASES TO LIVER
     Dosage: UNK, CYCLICAL
     Route: 065
  16. OXALIPLATIN. [Interacting]
     Active Substance: OXALIPLATIN
     Indication: ADENOCARCINOMA OF COLON
     Dosage: UNK, 3 CYCLICAL
     Route: 065
  17. IRINOTECAN [Concomitant]
     Active Substance: IRINOTECAN
     Indication: ADENOCARCINOMA OF COLON

REACTIONS (4)
  - Hepatic encephalopathy [Fatal]
  - Portal hypertension [Unknown]
  - Nodular regenerative hyperplasia [Unknown]
  - Radiation interaction [Unknown]
